FAERS Safety Report 19308332 (Version 1)
Quarter: 2021Q2

REPORT INFORMATION
  Report Type: Report from Study
  Country: US (occurrence: US)
  Receive Date: 20210525
  Receipt Date: 20210525
  Transmission Date: 20210717
  Serious: No
  Sender: FDA-Public Use
  Company Number: NVSC2021US110122

PATIENT
  Sex: Male

DRUGS (1)
  1. COSENTYX [Suspect]
     Active Substance: SECUKINUMAB
     Indication: PSORIASIS
     Dosage: 300 MG, UNKNOWN (BENEATH THE SKIN, USUALLY VIA INJECTION)
     Route: 058
     Dates: start: 202011

REACTIONS (3)
  - Rash pruritic [Recovered/Resolved]
  - Skin haemorrhage [Recovered/Resolved]
  - Inappropriate schedule of product discontinuation [Unknown]
